FAERS Safety Report 9476213 (Version 1)
Quarter: 2013Q3

REPORT INFORMATION
  Report Type: Spontaneous
  Country: US (occurrence: US)
  Receive Date: 20130826
  Receipt Date: 20130826
  Transmission Date: 20140515
  Serious: Yes (Death)
  Sender: FDA-Public Use
  Company Number: US-ROCHE-1261050

PATIENT
  Age: 56 Year
  Sex: Male

DRUGS (27)
  1. VALGANCICLOVIR [Suspect]
     Indication: PRODUCT USED FOR UNKNOWN INDICATION
     Dosage: 2 TIMES
     Route: 065
     Dates: start: 20130305, end: 20130306
  2. NEUPOGEN [Suspect]
     Indication: PRODUCT USED FOR UNKNOWN INDICATION
     Route: 058
     Dates: start: 20130312
  3. GANCICLOVIR [Suspect]
     Indication: PRODUCT USED FOR UNKNOWN INDICATION
     Route: 042
     Dates: start: 20130306
  4. ACICLOVIR [Suspect]
     Indication: PRODUCT USED FOR UNKNOWN INDICATION
     Route: 042
     Dates: start: 20130313
  5. AMPHOTERICIN B [Suspect]
     Indication: PRODUCT USED FOR UNKNOWN INDICATION
     Route: 048
     Dates: start: 20130310
  6. CASPOFUNGIN ACETATE [Suspect]
     Indication: PRODUCT USED FOR UNKNOWN INDICATION
     Route: 065
     Dates: start: 20130312
  7. MAGMIN [Suspect]
     Indication: PRODUCT USED FOR UNKNOWN INDICATION
     Dosage: 2, 2 TIMES
     Route: 048
     Dates: start: 20130306
  8. MEROPENEM [Suspect]
     Indication: PRODUCT USED FOR UNKNOWN INDICATION
     Dosage: 2 TIMES
     Route: 065
     Dates: start: 20130312
  9. ONDANSETRON [Suspect]
     Indication: PRODUCT USED FOR UNKNOWN INDICATION
     Dosage: 3 TIMES
     Route: 065
     Dates: start: 20130309
  10. PARACETAMOL [Suspect]
     Indication: PRODUCT USED FOR UNKNOWN INDICATION
     Dosage: AS NECESSARY
     Route: 048
     Dates: start: 20130307
  11. TRIMETHOPRIM [Suspect]
     Indication: PRODUCT USED FOR UNKNOWN INDICATION
     Dosage: 2 DOSES UNSPECIFIED WEEKLY
     Route: 065
     Dates: start: 20130219, end: 20130310
  12. ENOXAPARIN [Suspect]
     Indication: PRODUCT USED FOR UNKNOWN INDICATION
     Route: 058
     Dates: start: 20130309
  13. VANCOMYCIN [Suspect]
     Indication: PRODUCT USED FOR UNKNOWN INDICATION
     Route: 065
     Dates: start: 20130312
  14. MYCOPHENOLATE MOFETIL [Concomitant]
     Indication: PRODUCT USED FOR UNKNOWN INDICATION
     Route: 065
  15. AMLODIPINE [Concomitant]
  16. CHLORPHENESIN [Concomitant]
  17. CYCLOSPORIN [Concomitant]
  18. FOLIC ACID [Concomitant]
  19. METOCLOPRAMIDE HYDROCHLORIDE [Concomitant]
  20. NOVORAPID [Concomitant]
  21. NYSTATIN [Concomitant]
     Route: 065
     Dates: start: 20130310
  22. OXYNORM [Concomitant]
  23. PANTOPRAZOLE [Concomitant]
  24. RANITIDINE [Concomitant]
  25. URSODEOXYCHOLIC ACID [Concomitant]
  26. PREDNISOLONE [Concomitant]
  27. CHOLECALCIFEROL [Concomitant]

REACTIONS (1)
  - Toxic epidermal necrolysis [Fatal]
